FAERS Safety Report 12936484 (Version 3)
Quarter: 2016Q4

REPORT INFORMATION
  Report Type: Spontaneous
  Country: US (occurrence: US)
  Receive Date: 20161114
  Receipt Date: 20161122
  Transmission Date: 20170207
  Serious: No
  Sender: FDA-Public Use
  Company Number: US-ASTRAZENECA-2016SF15625

PATIENT
  Age: 20699 Day
  Sex: Female

DRUGS (4)
  1. BYETTA [Suspect]
     Active Substance: EXENATIDE
     Indication: TYPE 2 DIABETES MELLITUS
     Route: 058
  2. DEPRESSION PILLS [Concomitant]
     Indication: DEPRESSION
  3. DIABETES PILLS [Concomitant]
     Indication: DIABETES MELLITUS
  4. NERVE PILLS [Concomitant]
     Indication: NERVOUS SYSTEM DISORDER

REACTIONS (3)
  - Vision blurred [Unknown]
  - Blood glucose fluctuation [Unknown]
  - Drug dose omission [Unknown]

NARRATIVE: CASE EVENT DATE: 20161107
